FAERS Safety Report 11680198 (Version 2)
Quarter: 2015Q4

REPORT INFORMATION
  Report Type: Spontaneous
  Country: US (occurrence: US)
  Receive Date: 20151027
  Receipt Date: 20151104
  Transmission Date: 20160304
  Serious: Yes (Other)
  Sender: FDA-Public Use
  Company Number: US-ELI_LILLY_AND_COMPANY-US201011005971

PATIENT
  Sex: Female
  Weight: 76.19 kg

DRUGS (5)
  1. FORTEO [Suspect]
     Active Substance: TERIPARATIDE
     Dosage: 20 UG, DAILY (1/D)
     Route: 058
  2. FORTEO [Suspect]
     Active Substance: TERIPARATIDE
     Indication: OSTEOPOROSIS
     Dosage: 20 UG, DAILY (1/D)
     Route: 058
     Dates: start: 20101025
  3. QUINAPRIL [Concomitant]
     Active Substance: QUINAPRIL\QUINAPRIL HYDROCHLORIDE
  4. ANTIHYPERTENSIVES [Concomitant]
     Active Substance: UNSPECIFIED INGREDIENT
  5. AMIODARONE [Concomitant]
     Active Substance: AMIODARONE

REACTIONS (7)
  - Nausea [Recovered/Resolved]
  - Dizziness [Unknown]
  - Bone pain [Unknown]
  - Dizziness [Recovered/Resolved]
  - Arthralgia [Unknown]
  - Syncope [Recovering/Resolving]
  - Fall [Unknown]
